FAERS Safety Report 22132069 (Version 7)
Quarter: 2025Q2

REPORT INFORMATION
  Report Type: Report from Study
  Country: US (occurrence: US)
  Receive Date: 20230323
  Receipt Date: 20250429
  Transmission Date: 20250716
  Serious: Yes (Hospitalization, Other)
  Sender: TAKEDA
  Company Number: US-TAKEDA-2023TUS011660

PATIENT
  Age: 62 Year
  Sex: Female
  Weight: 73 kg

DRUGS (31)
  1. HUMAN IMMUNOGLOBULIN G [Suspect]
     Active Substance: HUMAN IMMUNOGLOBULIN G
     Indication: Myopathy
  2. HUMAN IMMUNOGLOBULIN G [Suspect]
     Active Substance: HUMAN IMMUNOGLOBULIN G
     Dosage: 60 GRAM, Q3WEEKS
  3. HUMAN IMMUNOGLOBULIN G [Suspect]
     Active Substance: HUMAN IMMUNOGLOBULIN G
     Dosage: 60 GRAM, Q4WEEKS
  4. EPINEPHRINE [Concomitant]
     Active Substance: EPINEPHRINE
  5. DIPHENHYDRAMINE HYDROCHLORIDE [Concomitant]
     Active Substance: DIPHENHYDRAMINE HYDROCHLORIDE
  6. TRULICITY [Concomitant]
     Active Substance: DULAGLUTIDE
  7. MAGNESIUM [Concomitant]
     Active Substance: MAGNESIUM
  8. SODIUM CHLORIDE [Concomitant]
     Active Substance: SODIUM CHLORIDE
  9. ACETAMINOPHEN [Concomitant]
     Active Substance: ACETAMINOPHEN
  10. HEPARIN SODIUM [Concomitant]
     Active Substance: HEPARIN SODIUM
  11. VITAMIN D3 [Concomitant]
     Active Substance: CHOLECALCIFEROL
  12. PREDNISONE [Concomitant]
     Active Substance: PREDNISONE
  13. ZINC [Concomitant]
     Active Substance: ZINC
  14. METFORMIN HYDROCHLORIDE [Concomitant]
     Active Substance: METFORMIN HYDROCHLORIDE
  15. LIDOCAINE [Concomitant]
     Active Substance: LIDOCAINE
  16. CALCIUM [Concomitant]
     Active Substance: CALCIUM
  17. CHROMIUM PICOLINATE [Concomitant]
     Active Substance: CHROMIUM PICOLINATE
  18. ZETIA [Concomitant]
     Active Substance: EZETIMIBE
  19. Lmx [Concomitant]
  20. HUMALOG [Concomitant]
     Active Substance: INSULIN LISPRO
  21. METFORMIN [Concomitant]
     Active Substance: METFORMIN HYDROCHLORIDE
  22. POTASSIUM CHLORIDE [Concomitant]
     Active Substance: POTASSIUM CHLORIDE
  23. ICOSAPENT ETHYL [Concomitant]
     Active Substance: ICOSAPENT ETHYL
  24. EVENITY [Concomitant]
     Active Substance: ROMOSOZUMAB-AQQG
  25. MELOXICAM [Concomitant]
     Active Substance: MELOXICAM
  26. LISINOPRIL [Concomitant]
     Active Substance: LISINOPRIL
  27. VITAMIN D [Concomitant]
     Active Substance: VITAMIN D NOS
  28. ELIQUIS [Concomitant]
     Active Substance: APIXABAN
  29. ASPIRIN [Concomitant]
     Active Substance: ASPIRIN
  30. RECLAST [Concomitant]
     Active Substance: ZOLEDRONIC ACID
  31. DIPHENHYDRAMINE [Concomitant]
     Active Substance: DIPHENHYDRAMINE

REACTIONS (11)
  - Lumbar spinal stenosis [Unknown]
  - Cauda equina syndrome [Unknown]
  - Blood glucose increased [Unknown]
  - Incorrect drug administration rate [Unknown]
  - Product dose omission issue [Unknown]
  - Off label use [Unknown]
  - Fall [Unknown]
  - Restlessness [Unknown]
  - Pruritus [Unknown]
  - Dizziness [Unknown]
  - Paraesthesia [Unknown]

NARRATIVE: CASE EVENT DATE: 20230119
